FAERS Safety Report 19869987 (Version 1)
Quarter: 2021Q3

REPORT INFORMATION
  Report Type: Spontaneous
  Country: US (occurrence: US)
  Receive Date: 20210923
  Receipt Date: 20210923
  Transmission Date: 20211014
  Serious: No
  Sender: FDA-Public Use
  Company Number: US-LUPIN PHARMACEUTICALS INC.-2021-17840

PATIENT
  Age: 77 Year
  Sex: Female

DRUGS (1)
  1. ALBUTEROL SULFATE INHALATION AEROSOL, 90 MCG/ACTUATION [Suspect]
     Active Substance: ALBUTEROL SULFATE
     Indication: PRODUCT USED FOR UNKNOWN INDICATION
     Dosage: UNK, 2 PUFFS EVERY 4?6 HRS
     Dates: start: 20210907

REACTIONS (4)
  - Device delivery system issue [Unknown]
  - Malaise [Unknown]
  - Headache [Unknown]
  - Device information output issue [Unknown]

NARRATIVE: CASE EVENT DATE: 20210907
